FAERS Safety Report 8456841-7 (Version None)
Quarter: 2012Q2

REPORT INFORMATION
  Report Type: 
  Country: None (occurrence: None)
  Receive Date: 20120621
  Receipt Date: 20120619
  Transmission Date: 20120825
  Serious: No
  Sender: FDA-Public Use
  Company Number: US-PFIZER INC-2012148734

PATIENT
  Sex: Female
  Weight: 109 kg

DRUGS (4)
  1. ZOLOFT [Suspect]
     Indication: EMOTIONAL DISORDER
     Dosage: 100 MG, 1X/DAY
     Route: 048
     Dates: start: 19960101, end: 20080101
  2. ZOLOFT [Suspect]
     Indication: PAIN
  3. SERTRALINE HYDROCHLORIDE [Suspect]
     Indication: EMOTIONAL DISORDER
     Dosage: 25 MG, 1X/DAY
     Dates: start: 20120601
  4. SERTRALINE HYDROCHLORIDE [Suspect]
     Indication: PAIN

REACTIONS (3)
  - HYPERGLYCAEMIA [None]
  - PALPITATIONS [None]
  - MENOPAUSE [None]
